FAERS Safety Report 9812060 (Version 1)
Quarter: 2014Q1

REPORT INFORMATION
  Report Type: Spontaneous
  Country: BR (occurrence: BR)
  Receive Date: 20140110
  Receipt Date: 20140110
  Transmission Date: 20141002
  Serious: Yes (Hospitalization, Other)
  Sender: FDA-Public Use
  Company Number: BR-ASTRAZENECA-2014SE01131

PATIENT
  Sex: Female

DRUGS (10)
  1. CRESTOR [Suspect]
     Indication: BLOOD PRESSURE ABNORMAL
     Route: 048
  2. BRILINTA [Suspect]
     Route: 048
     Dates: start: 201305
  3. ENALAPRIL HYDROCHLORIDE [Concomitant]
     Indication: CARDIAC DISORDER
  4. PLAVIX [Concomitant]
     Indication: SWELLING
  5. PLAVIX [Concomitant]
     Indication: CARDIAC FAILURE
  6. CAVERDILOL [Concomitant]
     Indication: CARDIAC DISORDER
  7. PREBICTAL [Concomitant]
     Indication: NEURALGIA
  8. POLARAMINE [Concomitant]
     Indication: PRURITUS
  9. ASA [Concomitant]
     Indication: CARDIAC DISORDER
  10. UNKNOWN [Concomitant]
     Indication: THYROID DISORDER

REACTIONS (6)
  - Herpes zoster [Recovering/Resolving]
  - Cardiac failure [Unknown]
  - Pulmonary oedema [Unknown]
  - Swelling [Recovered/Resolved]
  - Urinary bladder haemorrhage [Unknown]
  - Off label use [Not Recovered/Not Resolved]
